FAERS Safety Report 16346428 (Version 3)
Quarter: 2019Q2

REPORT INFORMATION
  Report Type: Spontaneous
  Country: IT (occurrence: IT)
  Receive Date: 20190523
  Receipt Date: 20190624
  Transmission Date: 20190711
  Serious: Yes (Other)
  Sender: FDA-Public Use
  Company Number: IT-ACCORD-124245

PATIENT
  Age: 50 Year
  Sex: Male
  Weight: 77 kg

DRUGS (5)
  1. IRINOTECAN [Suspect]
     Active Substance: IRINOTECAN
     Indication: COLON CANCER
     Route: 042
     Dates: start: 20190208, end: 20190312
  2. RANITIDINE. [Concomitant]
     Active Substance: RANITIDINE
  3. FLUOROURACIL. [Suspect]
     Active Substance: FLUOROURACIL
     Indication: COLON CANCER
     Dosage: ALSO TAKEN 4680 MG FROM 08-FEB-2019 TO 12-MAR-2019INTRAVENOUS (NOT OTHERWISE SPECIFIED)
     Route: 040
     Dates: start: 20190208, end: 20190312
  4. BEVACIZUMAB. [Suspect]
     Active Substance: BEVACIZUMAB
     Indication: COLON CANCER
     Route: 042
     Dates: start: 20190208, end: 20190312
  5. DEXAMETHASONE. [Concomitant]
     Active Substance: DEXAMETHASONE

REACTIONS (2)
  - Neutropenia [Recovering/Resolving]
  - Leukopenia [Recovering/Resolving]

NARRATIVE: CASE EVENT DATE: 20190228
